FAERS Safety Report 8524990-0 (Version None)
Quarter: 2012Q3

REPORT INFORMATION
  Report Type: 
  Country: None (occurrence: None)
  Receive Date: 20120720
  Receipt Date: 20120717
  Transmission Date: 20120928
  Serious: Yes (Life-Threatening, Hospitalization, Other)
  Sender: FDA-Public Use
  Company Number: EG-ROCHE-1052915

PATIENT
  Sex: Female
  Weight: 75 kg

DRUGS (14)
  1. CHLORAMBUCIL [Suspect]
     Indication: LYMPHOCYTIC LEUKAEMIA
     Dosage: LAST DOSE PRIOR TO THE EVENT:11/MAR/2012
     Route: 048
     Dates: start: 20120212, end: 20120325
  2. MABTHERA [Suspect]
     Indication: LYMPHOCYTIC LEUKAEMIA
     Dosage: LAST DOSE PRIOR TO EVENT: 11/MAR/2012, CYCLE 1
     Route: 042
     Dates: start: 20120212
  3. ACETAMINOPHEN [Concomitant]
     Dosage: 1500 CC
     Dates: start: 20120322, end: 20120328
  4. MULTIVITAMIN ADDITIVE [Concomitant]
     Dates: start: 20120324, end: 20120328
  5. CIPROFLOXACIN [Concomitant]
     Dates: start: 20120321, end: 20120323
  6. LASIX [Concomitant]
     Dosage: DOAE: 5 AMPOULE
     Dates: start: 20120324, end: 20120329
  7. MABTHERA [Suspect]
     Dosage: CYCLE 2-6
     Route: 042
     Dates: end: 20120329
  8. GLYCOPHOS [Concomitant]
     Dates: start: 20120324, end: 20120328
  9. INSULIN NORDISK MIXTARD (PORK) [Concomitant]
     Dosage: 70 UNIT
     Dates: start: 19970615, end: 20120328
  10. AUGMENTIN '500' [Concomitant]
     Dates: start: 20120321, end: 20120323
  11. VITALIPID [Concomitant]
     Dates: start: 20120324, end: 20120328
  12. MANITOL [Concomitant]
     Dosage: 200 CC
     Dates: start: 20120324, end: 20120328
  13. FLUCONAZOLE [Concomitant]
     Dates: start: 20120321, end: 20120323
  14. INNOHEP [Concomitant]
     Dates: start: 20120324, end: 20120328

REACTIONS (3)
  - SUPRAVENTRICULAR TACHYCARDIA [None]
  - CARDIAC ARREST [None]
  - DEPRESSED LEVEL OF CONSCIOUSNESS [None]
